FAERS Safety Report 18667616 (Version 1)
Quarter: 2020Q4

REPORT INFORMATION
  Report Type: Spontaneous
  Country: CN (occurrence: CN)
  Receive Date: 20201228
  Receipt Date: 20201228
  Transmission Date: 20210114
  Serious: Yes (Other)
  Sender: FDA-Public Use
  Company Number: CN-DOVA PHARMACEUTICALS INC.-DOV-000777

PATIENT

DRUGS (10)
  1. RHTPO [Concomitant]
     Indication: HEPATIC FAILURE
  2. RHTPO [Concomitant]
     Indication: HEPATIC CANCER
  3. INTERLEUKINS [Concomitant]
     Active Substance: INTERLEUKIN NOS
     Indication: MYELOSUPPRESSION
     Dosage: UNK
     Dates: start: 20201127, end: 20201201
  4. INTERLEUKINS [Concomitant]
     Active Substance: INTERLEUKIN NOS
     Indication: HEPATIC CANCER
  5. ELTROMBOPAG [Concomitant]
     Active Substance: ELTROMBOPAG
     Indication: MYELOSUPPRESSION
     Dosage: UNK
     Dates: start: 20201127, end: 20201201
  6. RHTPO [Concomitant]
     Indication: MYELOSUPPRESSION
     Dosage: UNK
     Dates: start: 20201127, end: 20201201
  7. ELTROMBOPAG [Concomitant]
     Active Substance: ELTROMBOPAG
     Indication: HEPATIC FAILURE
  8. SUKEXIN [Suspect]
     Active Substance: AVATROMBOPAG
     Indication: THROMBOCYTOPENIA
     Dosage: 60 MILLIGRAM, QD
     Route: 048
     Dates: start: 20201201, end: 20201205
  9. INTERLEUKINS [Concomitant]
     Active Substance: INTERLEUKIN NOS
     Indication: HEPATIC FAILURE
  10. ELTROMBOPAG [Concomitant]
     Active Substance: ELTROMBOPAG
     Indication: HEPATIC CANCER

REACTIONS (1)
  - Hepatic artery thrombosis [Unknown]

NARRATIVE: CASE EVENT DATE: 20201205
